FAERS Safety Report 8797846 (Version 1)
Quarter: 2012Q4

REPORT INFORMATION
  Report Type: Spontaneous
  Country: DE (occurrence: None)
  Receive Date: 20120913
  Receipt Date: 20120913
  Transmission Date: 20130627
  Serious: Yes (Life-Threatening, Hospitalization)
  Sender: FDA-Public Use
  Company Number: 2012HGS-003896

PATIENT
  Sex: Female

DRUGS (3)
  1. BENLYSTA [Suspect]
     Route: 041
     Dates: start: 20120710
  2. PREDNISOLONE [Concomitant]
  3. MYCOPHENOLATE MOFETIL [Concomitant]

REACTIONS (6)
  - Staphylococcal sepsis [None]
  - Lung infiltration [None]
  - Pulmonary mass [None]
  - Lung neoplasm [None]
  - Bronchopulmonary aspergillosis [None]
  - Pneumonia [None]
